FAERS Safety Report 8171097-0 (Version None)
Quarter: 2012Q1

REPORT INFORMATION
  Report Type: 
  Country: None (occurrence: None)
  Receive Date: 20120228
  Receipt Date: 20120221
  Transmission Date: 20120608
  Serious: Yes (Other)
  Sender: FDA-Public Use
  Company Number: PHHY2011CA00533

PATIENT
  Sex: Female

DRUGS (1)
  1. ZOLEDRONOC ACID [Suspect]
     Indication: OSTEOPOROSIS
     Dosage: UNK UKN, UNK
     Route: 042
     Dates: start: 20100223

REACTIONS (12)
  - BACK PAIN [None]
  - EAR PAIN [None]
  - INSOMNIA [None]
  - HERPES ZOSTER [None]
  - HYPOKINESIA [None]
  - TOOTH FRACTURE [None]
  - PAIN IN JAW [None]
  - MOBILITY DECREASED [None]
  - PAIN [None]
  - SCAPULA FRACTURE [None]
  - RIB FRACTURE [None]
  - MASTICATION DISORDER [None]
